FAERS Safety Report 7229820-5 (Version None)
Quarter: 2011Q1

REPORT INFORMATION
  Report Type: 
  Country: None (occurrence: None)
  Receive Date: 20110117
  Receipt Date: 20101019
  Transmission Date: 20110831
  Serious: Yes (Hospitalization, Other)
  Sender: FDA-Public Use
  Company Number: US-BAYER-201039189NA

PATIENT
  Sex: Female
  Weight: 70.455 kg

DRUGS (10)
  1. YASMIN [Suspect]
     Indication: MENSTRUATION IRREGULAR
  2. VIRAL VACCINES [Concomitant]
     Dates: start: 20071107
  3. VITAMIN B-12 [Concomitant]
     Indication: VITAMIN B12 DEFICIENCY
  4. SYNTHROID [Concomitant]
     Indication: THYROID DISORDER
  5. VIRAL VACCINES [Concomitant]
     Indication: PRODUCT USED FOR UNKNOWN INDICATION
     Dates: start: 20080109
  6. PHENERGAN [Concomitant]
     Route: 030
     Dates: start: 20080202
  7. YASMIN [Suspect]
     Indication: ACNE
     Route: 048
     Dates: start: 20040101, end: 20080201
  8. LEVOXYL [Concomitant]
     Indication: THYROID DISORDER
  9. MINOCIN [Concomitant]
  10. PHENERGAN [Concomitant]
     Indication: VOMITING
     Dates: start: 20080201, end: 20080201

REACTIONS (7)
  - HEMIPLEGIA [None]
  - WALLENBERG SYNDROME [None]
  - DIPLOPIA [None]
  - DIZZINESS [None]
  - HYPOAESTHESIA [None]
  - VERTIGO [None]
  - HEADACHE [None]
